FAERS Safety Report 14498092 (Version 1)
Quarter: 2018Q1

REPORT INFORMATION
  Report Type: Spontaneous
  Country: US (occurrence: US)
  Receive Date: 20180206
  Receipt Date: 20180206
  Transmission Date: 20180509
  Serious: Yes (Other)
  Sender: FDA-Public Use
  Company Number: None

PATIENT
  Age: 41 Year
  Sex: Female

DRUGS (1)
  1. BOTOX [Suspect]
     Active Substance: ONABOTULINUMTOXINA
     Indication: MIGRAINE
     Dosage: OTHER FREQUENCY:EVEY 3 MONTHS;?
     Route: 030
     Dates: start: 20170425

REACTIONS (1)
  - Migraine [None]

NARRATIVE: CASE EVENT DATE: 20180105
